FAERS Safety Report 23328414 (Version 1)
Quarter: 2023Q4

REPORT INFORMATION
  Report Type: Spontaneous
  Country: PT (occurrence: PT)
  Receive Date: 20231221
  Receipt Date: 20231221
  Transmission Date: 20240109
  Serious: Yes (Other)
  Sender: FDA-Public Use
  Company Number: PT-AMGEN-PRTSP2023140987

PATIENT
  Age: 49 Year
  Sex: Female

DRUGS (4)
  1. ADALIMUMAB [Suspect]
     Active Substance: ADALIMUMAB\ISOPROPYL ALCOHOL
     Indication: Crohn^s disease
     Dosage: DOSAGE 1, UNIT: NOT AVAILABLE, Q2WK
     Route: 065
  2. CYANOCOBALAMIN [Concomitant]
     Active Substance: CYANOCOBALAMIN
     Indication: Crohn^s disease
     Dosage: 1 MILLIGRAM (1 TABLET PER DAY)
     Route: 065
  3. CALCIFEDIOL [Concomitant]
     Active Substance: CALCIFEDIOL
     Indication: Crohn^s disease
     Dosage: 0.266 MILLIGRAM (ONE TABLET BY MOUTH)
     Route: 048
  4. IMURAN [Concomitant]
     Active Substance: AZATHIOPRINE
     Indication: Crohn^s disease
     Dosage: 25 MILLIGRAM, QD
     Route: 065

REACTIONS (3)
  - Macular oedema [Recovered/Resolved]
  - Macular ischaemia [Recovering/Resolving]
  - Retinal haemorrhage [Recovering/Resolving]
